FAERS Safety Report 7902962-4 (Version None)
Quarter: 2011Q4

REPORT INFORMATION
  Report Type: 
  Country: None (occurrence: None)
  Receive Date: 20111107
  Receipt Date: 20111020
  Transmission Date: 20120403
  Serious: Yes (Other)
  Sender: FDA-Public Use
  Company Number: 2010MA001013

PATIENT
  Age: 70 Year
  Sex: Male
  Weight: 73 kg

DRUGS (11)
  1. MIRTAZAPINE [Suspect]
     Indication: DEPRESSION
     Dosage: 45 MG, QD, PO
     Route: 048
     Dates: start: 20060601
  2. MIRTAZAPINE [Suspect]
     Indication: ANXIETY
     Dosage: 45 MG, QD, PO
     Route: 048
     Dates: start: 20060601
  3. MIRTAZAPINE [Suspect]
     Indication: ANXIETY
     Dosage: 45 MG, QD, PO
     Route: 048
     Dates: start: 20060601
  4. MIRTAZAPINE [Suspect]
     Indication: DEPRESSION
     Dosage: 45 MG, QD, PO
     Route: 048
     Dates: start: 20060601
  5. CALCIUM CHANNEL BLOCKER [Concomitant]
  6. CLONAZEPAM [Concomitant]
  7. PAROXETINE HCL [Concomitant]
  8. VENLAFAXINE HYDROCHLORIDE [Suspect]
     Indication: DEPRESSION
     Dosage: 37.5 MG, QD
     Dates: start: 20060201
  9. VENLAFAXINE HYDROCHLORIDE [Suspect]
     Indication: ANXIETY
     Dosage: 37.5 MG, QD
     Dates: start: 20060201
  10. BENZODIAZEPINES [Concomitant]
  11. TRANQUILIZERS [Concomitant]

REACTIONS (4)
  - PARKINSONIAN GAIT [None]
  - PARTNER STRESS [None]
  - FEELING ABNORMAL [None]
  - COGWHEEL RIGIDITY [None]
